FAERS Safety Report 8621390-X (Version None)
Quarter: 2012Q3

REPORT INFORMATION
  Report Type: 
  Country: None (occurrence: None)
  Receive Date: 20120824
  Receipt Date: 20120821
  Transmission Date: 20120928
  Serious: Yes (Disabling, Other)
  Sender: FDA-Public Use
  Company Number: US-PFIZER INC-2012177924

PATIENT
  Age: 43 Year
  Sex: Male

DRUGS (6)
  1. NEURONTIN [Suspect]
     Dosage: 300 MG, 2X/DAY
     Dates: end: 20120601
  2. GLIPIZIDE [Concomitant]
     Dosage: UNK
  3. PRAVASTATIN [Concomitant]
  4. MELOXICAM [Concomitant]
  5. METFORMIN [Concomitant]
  6. CYMBALTA [Concomitant]

REACTIONS (3)
  - BACK PAIN [None]
  - IMPAIRED WORK ABILITY [None]
  - NECK PAIN [None]
